FAERS Safety Report 5225318-4 (Version None)
Quarter: 2007Q1

REPORT INFORMATION
  Report Type: 
  Country: None (occurrence: None)
  Receive Date: 20070131
  Receipt Date: 20070119
  Transmission Date: 20070707
  Serious: Yes (Hospitalization)
  Sender: FDA-Public Use
  Company Number: US-JNJFOC-20070105384

PATIENT
  Sex: Female
  Weight: 56.25 kg

DRUGS (8)
  1. REMICADE [Suspect]
     Indication: CROHN'S DISEASE
     Route: 042
  2. PROVENTIL [Concomitant]
  3. ADVAIR DISKUS 100/50 [Concomitant]
  4. IRON [Concomitant]
  5. POTASSIUM ACETATE [Concomitant]
  6. VITAMIN AND MINERAL PRENATAL SUPPLEMENT W/ FOLIC ACID CAP [Concomitant]
  7. AZATHIOPRINE [Concomitant]
  8. IBUPROFEN [Concomitant]
     Indication: MYALGIA

REACTIONS (3)
  - ARTHROPOD BITE [None]
  - FURUNCLE [None]
  - TREMOR [None]
